FAERS Safety Report 13535385 (Version 2)
Quarter: 2018Q1

REPORT INFORMATION
  Report Type: Spontaneous
  Country: FR (occurrence: FR)
  Receive Date: 20170511
  Receipt Date: 20180116
  Transmission Date: 20180508
  Serious: Yes (Hospitalization)
  Sender: FDA-Public Use
  Company Number: FR-PFIZER INC-2017200192

PATIENT
  Age: 73 Year
  Sex: Male
  Weight: 54.7 kg

DRUGS (12)
  1. VALACICLOVIR [Suspect]
     Active Substance: VALACYCLOVIR HYDROCHLORIDE
     Indication: OPPORTUNISTIC INFECTION PROPHYLAXIS
     Dosage: 500 MG, 1X/DAY
     Route: 048
     Dates: start: 20170131, end: 20170321
  2. XATRAL [Suspect]
     Active Substance: ALFUZOSIN
     Dosage: 10 MG, 1X/DAY
     Route: 048
     Dates: start: 201701, end: 20170321
  3. PRAXILENE [Concomitant]
     Active Substance: NAFRONYL
     Dosage: 200 MG, 2X/DAY
     Route: 048
     Dates: start: 2017, end: 20170321
  4. GEMCITABINE INTAS [Suspect]
     Active Substance: GEMCITABINE HYDROCHLORIDE
     Indication: PERIPHERAL T-CELL LYMPHOMA UNSPECIFIED RECURRENT
     Dosage: 1700 MG, CYCLIC
     Route: 042
     Dates: start: 20170301
  5. SPECIAFOLDINE [Suspect]
     Active Substance: FOLIC ACID
     Dosage: 5 MG, 1X/DAY
     Route: 048
     Dates: start: 20170131, end: 20170321
  6. SERETIDE [Concomitant]
     Active Substance: FLUTICASONE PROPIONATE\SALMETEROL XINAFOATE
     Dosage: 1 DF, 2X/DAY
     Route: 045
     Dates: start: 2015
  7. PERMIXON [Concomitant]
     Active Substance: HERBALS\SAW PALMETTO
     Dosage: 160 MG, 2X/DAY
     Route: 048
     Dates: start: 2015, end: 20170321
  8. AUGMENTIN [Suspect]
     Active Substance: AMOXICILLIN\CLAVULANATE POTASSIUM
     Dosage: 1 DF, 3X/DAY
     Route: 048
     Dates: start: 20170317, end: 20170321
  9. BACTRIM [Suspect]
     Active Substance: SULFAMETHOXAZOLE\TRIMETHOPRIM
     Indication: OPPORTUNISTIC INFECTION PROPHYLAXIS
     Dosage: 1 DF, CYCLIC: 1DF EVERY 3 WEEKS
     Route: 048
     Dates: start: 20170201, end: 20170321
  10. OXALIPLATIN HOSPIRA [Suspect]
     Active Substance: OXALIPLATIN
     Indication: PERIPHERAL T-CELL LYMPHOMA UNSPECIFIED RECURRENT
     Dosage: 180 MG, CYCLIC
     Route: 042
     Dates: start: 20170301
  11. AUGMENTIN [Suspect]
     Active Substance: AMOXICILLIN\CLAVULANATE POTASSIUM
     Indication: PYREXIA
     Dosage: UNK
     Route: 048
     Dates: start: 201703, end: 201703
  12. COVERSYL /00790703/ [Concomitant]
     Active Substance: PERINDOPRIL
     Dosage: 2.5 MG, 1X/DAY
     Route: 048
     Dates: start: 201609, end: 20170321

REACTIONS (1)
  - Dermatitis exfoliative generalised [Recovering/Resolving]

NARRATIVE: CASE EVENT DATE: 20170310
